FAERS Safety Report 7405949-3 (Version None)
Quarter: 2011Q2

REPORT INFORMATION
  Report Type: 
  Country: None (occurrence: None)
  Receive Date: 20110411
  Receipt Date: 20110330
  Transmission Date: 20111010
  Serious: Yes (Hospitalization)
  Sender: FDA-Public Use
  Company Number: US-PFIZER INC-2011053611

PATIENT
  Sex: Female
  Weight: 71 kg

DRUGS (14)
  1. POTASSIUM [Concomitant]
     Dosage: UNK
     Route: 048
     Dates: start: 19990101
  2. CALCIUM [Concomitant]
     Dosage: UNK
     Route: 048
     Dates: start: 19940101
  3. CRESTOR [Concomitant]
     Dosage: UNK
     Route: 048
     Dates: start: 20090817
  4. GINKGO BILOBA [Concomitant]
     Dosage: UNK
     Route: 048
     Dates: start: 20040101
  5. METFORMIN [Concomitant]
     Dosage: UNK
     Route: 048
     Dates: start: 20060101
  6. CELECOXIB [Suspect]
     Indication: OSTEOARTHRITIS
     Dosage: 100 MG, 2X/DAY
     Route: 048
     Dates: start: 20090903
  7. ACETYLSALICYLIC ACID [Concomitant]
     Dosage: UNK
     Route: 048
     Dates: start: 20090501
  8. MULTI-VITAMINS [Concomitant]
     Dosage: UNK
     Route: 048
     Dates: start: 19940101
  9. FISH OIL [Concomitant]
     Dosage: UNK
     Route: 048
     Dates: start: 20100101
  10. PREVACID [Concomitant]
     Dosage: UNK
     Route: 048
     Dates: start: 20110310
  11. SYNTHROID [Concomitant]
     Dosage: UNK
     Route: 048
     Dates: start: 19610101
  12. PHENOBARB [Concomitant]
     Dosage: UNK
     Route: 048
     Dates: start: 19780101
  13. NEXIUM [Concomitant]
     Dosage: 40 MG, UNK
     Route: 048
     Dates: start: 20090903, end: 20110309
  14. PRANDIN [Concomitant]
     Dosage: UNK
     Route: 048
     Dates: start: 20060101

REACTIONS (1)
  - DEVICE OCCLUSION [None]
